FAERS Safety Report 14505106 (Version 1)
Quarter: 2018Q1

REPORT INFORMATION
  Report Type: Spontaneous
  Country: IT (occurrence: IT)
  Receive Date: 20180208
  Receipt Date: 20180208
  Transmission Date: 20180509
  Serious: Yes (Other)
  Sender: FDA-Public Use
  Company Number: IT-EMD SERONO-9008988

PATIENT
  Age: 31 Year
  Sex: Female

DRUGS (3)
  1. MENOTROPHIN [Suspect]
     Active Substance: MENOTROPINS
     Indication: PRODUCT USED FOR UNKNOWN INDICATION
     Dosage: FOR THREE CYCLES
     Route: 065
  2. BETAMETHASONE. [Concomitant]
     Active Substance: BETAMETHASONE
     Indication: PRODUCT USED FOR UNKNOWN INDICATION
  3. CLOMIFENE [Suspect]
     Active Substance: CLOMIPHENE
     Indication: PRODUCT USED FOR UNKNOWN INDICATION
     Dosage: FOR THREE CYCLES
     Route: 065

REACTIONS (4)
  - Live birth [Recovered/Resolved]
  - Premature delivery [Unknown]
  - Ovarian hyperstimulation syndrome [Unknown]
  - Multiple pregnancy [Unknown]
